FAERS Safety Report 8864068 (Version 1)
Quarter: 2012Q4

REPORT INFORMATION
  Report Type: 
  Country: US (occurrence: US)
  Receive Date: 20121024
  Receipt Date: 20121024
  Transmission Date: 20130627
  Serious: No
  Sender: FDA-Public Use
  Company Number: US-AMGEN-USASP2011065695

PATIENT
  Sex: Female

DRUGS (7)
  1. ENBREL [Suspect]
     Indication: PRODUCT USED FOR UNKNOWN INDICATION
     Dosage: 50 mg, qwk
     Route: 058
  2. MELOXICAM [Concomitant]
     Dosage: 7.5 mg, UNK
  3. SIMVASTATIN [Concomitant]
     Dosage: 5 mg, UNK
  4. LISINOPRIL HCTZ [Concomitant]
     Dosage: 10-12.5
  5. TRAMADOL HCL [Concomitant]
     Dosage: 50 mg, UNK
  6. LORTAB [Concomitant]
     Dosage: 5 UNK, UNK
  7. PROAIR HFA [Concomitant]

REACTIONS (1)
  - Rheumatoid arthritis [Unknown]
